FAERS Safety Report 5357429-7 (Version None)
Quarter: 2007Q2

REPORT INFORMATION
  Report Type: 
  Country: None (occurrence: None)
  Receive Date: 20070614
  Receipt Date: 20070503
  Transmission Date: 20071010
  Serious: Yes (Life-Threatening, Hospitalization)
  Sender: FDA-Public Use
  Company Number: CH-ASTRAZENECA-2007PK00937

PATIENT
  Age: 79 Year
  Sex: Male
  Weight: 79 kg

DRUGS (8)
  1. SEROQUEL [Suspect]
     Indication: RESTLESSNESS
     Route: 048
     Dates: start: 20061112, end: 20061112
  2. SEROQUEL [Interacting]
     Indication: AGITATION
     Route: 048
     Dates: start: 20061112, end: 20061112
  3. SEROQUEL [Interacting]
     Route: 048
     Dates: start: 20061113, end: 20061114
  4. SEROQUEL [Interacting]
     Route: 048
     Dates: start: 20061113, end: 20061114
  5. REMINYL [Interacting]
     Indication: DEMENTIA ALZHEIMER'S TYPE
     Route: 048
     Dates: start: 20050101
  6. CITALOPRAM HYDROBROMIDE [Interacting]
     Indication: DEPRESSION
     Route: 048
     Dates: start: 20060901
  7. CITALOPRAM HYDROBROMIDE [Interacting]
     Route: 048
     Dates: start: 20061001
  8. BIOFLORIN [Concomitant]
     Dates: start: 20061112

REACTIONS (5)
  - ATRIOVENTRICULAR BLOCK [None]
  - BRADYCARDIA [None]
  - BUNDLE BRANCH BLOCK LEFT [None]
  - DRUG INTERACTION [None]
  - HYPOTENSION [None]
